FAERS Safety Report 18192640 (Version 2)
Quarter: 2020Q4

REPORT INFORMATION
  Report Type: Spontaneous
  Country: JP (occurrence: JP)
  Receive Date: 20200825
  Receipt Date: 20201204
  Transmission Date: 20210113
  Serious: Yes (Hospitalization, Other)
  Sender: FDA-Public Use
  Company Number: JP-NOVOPROD-747252

PATIENT
  Age: 40 Year
  Sex: Female

DRUGS (12)
  1. MENATETRENONE [Concomitant]
     Active Substance: MENATETRENONE
     Indication: PRODUCT USED FOR UNKNOWN INDICATION
     Dosage: 45 MG, QD
     Route: 048
  2. NOVORAPID [Suspect]
     Active Substance: INSULIN ASPART
     Dosage: 30 IU, QD (12-14-4) (AT DAY OF HEMODIALYSIS)
     Route: 058
  3. FOLIC ACID. [Concomitant]
     Active Substance: FOLIC ACID
     Indication: PRODUCT USED FOR UNKNOWN INDICATION
     Dosage: 5 MG, QW
     Route: 048
  4. LEVEMIR [Suspect]
     Active Substance: INSULIN DETEMIR
     Indication: TYPE 2 DIABETES MELLITUS
     Dosage: 8 IU, QD (AT BEDTIME)
     Route: 058
  5. NOVORAPID [Suspect]
     Active Substance: INSULIN ASPART
     Indication: TYPE 2 DIABETES MELLITUS
     Dosage: 7 IU, QD (3-2-2)
     Route: 058
  6. CALCITRIOL. [Concomitant]
     Active Substance: CALCITRIOL
     Indication: PRODUCT USED FOR UNKNOWN INDICATION
     Dosage: 0.25 ?G/DAY
     Route: 048
  7. NOVORAPID [Suspect]
     Active Substance: INSULIN ASPART
     Dosage: 20 IU, QD (10-5-5) (AT DAY OF NON-HEMODIALYSIS)
     Route: 058
  8. VITAMEDIN [BENFOTIAMINE;CYANOCOBALAMIN;PYRIDOXINE HYDROCHLORIDE] [Concomitant]
     Indication: PRODUCT USED FOR UNKNOWN INDICATION
     Dosage: 3 CAPSULES/DAY
     Route: 048
  9. FOLIC ACID. [Concomitant]
     Active Substance: FOLIC ACID
     Indication: PRODUCT USED FOR UNKNOWN INDICATION
  10. ASPIRIN (E.C.) [Concomitant]
     Active Substance: ASPIRIN
     Indication: PRODUCT USED FOR UNKNOWN INDICATION
     Dosage: 100 MG, QD
     Route: 065
  11. NOVORAPID [Suspect]
     Active Substance: INSULIN ASPART
     Dosage: 10 IU, QD (3-3-4)
     Route: 058
  12. LEVEMIR [Suspect]
     Active Substance: INSULIN DETEMIR
     Dosage: 3 IU, QD (AT BEDTIME)
     Route: 058

REACTIONS (5)
  - Pre-eclampsia [Recovered/Resolved]
  - Maternal exposure during pregnancy [Recovered/Resolved]
  - Gastrooesophageal reflux disease [Unknown]
  - Decreased appetite [Recovered/Resolved]
  - Premature delivery [Unknown]
